FAERS Safety Report 4301582-0 (Version None)
Quarter: 2004Q1

REPORT INFORMATION
  Report Type: 
  Country: None (occurrence: None)
  Receive Date: 20040219
  Receipt Date: 20040210
  Transmission Date: 20041129
  Serious: Yes (Hospitalization)
  Sender: FDA-Public Use
  Company Number: US-JNJFOC-20040202537

PATIENT
  Sex: Male

DRUGS (1)
  1. RISPERDAL [Suspect]
     Indication: BIPOLAR DISORDER
     Dosage: PATIENT TOOK ONLY 1 DOSE IN TOTAL
     Dates: start: 20040201, end: 20040201

REACTIONS (3)
  - NECROSIS [None]
  - PAINFUL ERECTION [None]
  - PRIAPISM [None]
